FAERS Safety Report 5713626-X (Version None)
Quarter: 2008Q2

REPORT INFORMATION
  Report Type: 
  Country: None (occurrence: None)
  Receive Date: 20080422
  Receipt Date: 20080411
  Transmission Date: 20081010
  Serious: Yes (Other)
  Sender: FDA-Public Use
  Company Number: GB-MERCK-0804GBR00072

PATIENT
  Age: 60 Year
  Sex: Male
  Weight: 89 kg

DRUGS (6)
  1. VYTORIN [Suspect]
     Indication: BLOOD CHOLESTEROL INCREASED
     Route: 048
     Dates: start: 20080128, end: 20080129
  2. VYTORIN [Suspect]
     Route: 048
     Dates: start: 20080130
  3. ASPIRIN [Concomitant]
     Indication: PERIPHERAL VASCULAR DISORDER
     Route: 048
     Dates: start: 20041101
  4. LANSOPRAZOLE [Concomitant]
     Indication: GASTROOESOPHAGEAL REFLUX DISEASE
     Route: 048
     Dates: start: 20050101
  5. PAROXETINE [Concomitant]
     Route: 048
     Dates: start: 20020801
  6. VIAGRA [Concomitant]
     Indication: ERECTILE DYSFUNCTION
     Route: 048
     Dates: start: 20050101

REACTIONS (2)
  - PAIN IN EXTREMITY [None]
  - SYNCOPE [None]
